FAERS Safety Report 7078826-8 (Version None)
Quarter: 2010Q4

REPORT INFORMATION
  Report Type: 
  Country: None (occurrence: None)
  Receive Date: 20101102
  Receipt Date: 20101025
  Transmission Date: 20110411
  Serious: Yes (Hospitalization)
  Sender: FDA-Public Use
  Company Number: FR-SANOFI-AVENTIS-2010SA065055

PATIENT
  Age: 30 Year
  Sex: Male

DRUGS (2)
  1. STILNOX [Suspect]
     Indication: INSOMNIA
     Route: 048
     Dates: start: 20100722, end: 20100724
  2. TRIFLUCAN [Suspect]
     Indication: OESOPHAGEAL CANDIDIASIS
     Route: 048
     Dates: start: 20100720, end: 20100728

REACTIONS (3)
  - HYPERKERATOSIS [None]
  - PRURITUS [None]
  - SKIN EXFOLIATION [None]
